FAERS Safety Report 7613191-6 (Version None)
Quarter: 2011Q3

REPORT INFORMATION
  Report Type: 
  Country: None (occurrence: None)
  Receive Date: 20110708
  Receipt Date: 20110627
  Transmission Date: 20111222
  Serious: Yes (Other)
  Sender: FDA-Public Use
  Company Number: MPS1-1000488

PATIENT
  Age: 14 Year
  Sex: Male

DRUGS (1)
  1. ALDURAZYME [Suspect]
     Indication: MUCOPOLYSACCHARIDOSIS I
     Dosage: INTRAVENOUS
     Route: 042
     Dates: end: 20101201

REACTIONS (6)
  - WHEELCHAIR USER [None]
  - BEDRIDDEN [None]
  - DRUG INEFFECTIVE [None]
  - HAEMORRHOIDS [None]
  - DISEASE PROGRESSION [None]
  - MUCOPOLYSACCHARIDOSIS I [None]
